APPROVED DRUG PRODUCT: HALOPERIDOL DECANOATE
Active Ingredient: HALOPERIDOL DECANOATE
Strength: EQ 50MG BASE/ML
Dosage Form/Route: INJECTABLE;INJECTION
Application: A075393 | Product #001
Applicant: TEVA PHARMACEUTICALS USA
Approved: May 11, 1999 | RLD: No | RS: No | Type: DISCN